FAERS Safety Report 7962389-6 (Version None)
Quarter: 2011Q4

REPORT INFORMATION
  Report Type: 
  Country: None (occurrence: None)
  Receive Date: 20111125
  Receipt Date: 20111125
  Transmission Date: 20120403
  Serious: Yes (Other)
  Sender: FDA-Public Use
  Company Number: AUR-APL-2011-05982

PATIENT
  Age: 72 Year
  Sex: Female

DRUGS (22)
  1. SYMBICORT [Suspect]
     Indication: PRODUCT USED FOR UNKNOWN INDICATION
     Dosage: 80/4.5 MCG (2 DOSAGE FORMS,2 IN 1 D),INHALATION
     Route: 055
  2. COLCHICINE [Concomitant]
  3. FUROSEMIDE [Concomitant]
  4. CALAN [Concomitant]
  5. TOPROL-XL [Suspect]
     Indication: PRODUCT USED FOR UNKNOWN INDICATION
     Dosage: 1 DOSAGE FORMS (1 DOSAGE FORMS,1 IN 1 D),ORAL
     Route: 048
  6. OXYCODONE HCL [Concomitant]
  7. ACETAMINOPHEN [Concomitant]
  8. ASPIRIN [Concomitant]
  9. ALBUTEROL SULFATE [Concomitant]
  10. PROVENTIL [Concomitant]
  11. VENTOLIN [Concomitant]
  12. WELLBUTRIN [Concomitant]
  13. LISINOPRIL [Suspect]
     Indication: PRODUCT USED FOR UNKNOWN INDICATION
     Dosage: ORAL
     Route: 048
  14. CITALOPRAM HYDROBROMIDE [Concomitant]
  15. FORADIL AEROLIZER (FORMOTEROL) [Concomitant]
  16. VERAPAMIL HYDROCHLORIDE [Concomitant]
  17. ALLOPURINOL [Concomitant]
  18. VALIUM [Concomitant]
  19. CELEXA [Concomitant]
  20. LIPITOR [Concomitant]
  21. ATENOLOL [Suspect]
     Indication: PRODUCT USED FOR UNKNOWN INDICATION
  22. LASIX [Concomitant]

REACTIONS (14)
  - ANXIETY [None]
  - ARTHRITIS [None]
  - GASTROOESOPHAGEAL REFLUX DISEASE [None]
  - ANGINA PECTORIS [None]
  - OSTEOARTHRITIS [None]
  - CHRONIC OBSTRUCTIVE PULMONARY DISEASE [None]
  - HYPERTENSION [None]
  - HYPERLIPIDAEMIA [None]
  - ARTERIOSCLEROSIS CORONARY ARTERY [None]
  - LUNG NEOPLASM [None]
  - ARTHRALGIA [None]
  - ASTHMA [None]
  - GOUT [None]
  - DEPRESSION [None]
